FAERS Safety Report 4416158-4 (Version None)
Quarter: 2004Q3

REPORT INFORMATION
  Report Type: 
  Country: None (occurrence: None)
  Receive Date: 20040805
  Receipt Date: 20040728
  Transmission Date: 20050211
  Serious: Yes (Hospitalization)
  Sender: FDA-Public Use
  Company Number: US-BRISTOL-MYERS SQUIBB COMPANY-12652905

PATIENT
  Age: 81 Year
  Sex: Female

DRUGS (16)
  1. CARBOPLATIN [Suspect]
     Indication: OVARIAN CANCER
     Dosage: THERAPY DATES: 17-OCT-2002 TO 28-JAN-2003
     Route: 042
     Dates: start: 20030128, end: 20030128
  2. PACLITAXEL [Suspect]
     Indication: OVARIAN CANCER
     Dosage: THERAPY DATES: 17-OCT-2002 TO 28-JAN-2003
     Route: 042
     Dates: start: 20030128, end: 20030128
  3. INTERFERON GAMMA [Suspect]
     Indication: OVARIAN CANCER
     Route: 058
     Dates: start: 20021017, end: 20030219
  4. ATIVAN [Concomitant]
     Dates: start: 20021014
  5. COMPAZINE [Concomitant]
  6. ZANTAC [Concomitant]
     Dates: start: 20021029
  7. IMODIUM [Concomitant]
     Dates: start: 20021022
  8. PLAVIX [Concomitant]
     Dates: start: 20021018
  9. COUMADIN [Concomitant]
     Dates: start: 20021212
  10. ELAVIL [Concomitant]
     Dates: start: 20030124
  11. NEURONTIN [Concomitant]
     Dates: start: 20030124
  12. MEGACE [Concomitant]
  13. DICLOXACILLIN [Concomitant]
     Dates: start: 20030114, end: 20030124
  14. PROCRIT [Concomitant]
     Dates: start: 20021105
  15. NEULASTA [Concomitant]
     Dates: start: 20021119
  16. MEDROL [Concomitant]
     Dates: start: 20030129

REACTIONS (1)
  - ILEUS [None]
